FAERS Safety Report 8858950 (Version 5)
Quarter: 2013Q1

REPORT INFORMATION
  Report Type: Spontaneous
  Country: US (occurrence: US)
  Receive Date: 20121024
  Receipt Date: 20130308
  Transmission Date: 20140127
  Serious: Yes (Hospitalization, Other)
  Sender: FDA-Public Use
  Company Number: US-009507513-1201USA00242

PATIENT
  Sex: Female

DRUGS (4)
  1. FOSAMAX [Suspect]
     Indication: OSTEOPOROSIS
     Dosage: 70 MG, UNK
     Route: 048
     Dates: start: 2007, end: 20110124
  2. FOSAMAX [Suspect]
     Dosage: 70 MG, QW
     Route: 048
  3. CENTRUM (MINERALS (UNSPECIFIED) (+) VITAMINS (UNSPECIFIED)) [Concomitant]
     Dosage: ONCE DAILY
     Dates: start: 2006
  4. LOVAZA [Concomitant]
     Indication: CARDIAC DISORDER
     Dosage: UNK
     Dates: start: 2002

REACTIONS (4)
  - Femur fracture [Unknown]
  - Open reduction of fracture [Unknown]
  - Fall [Unknown]
  - Fracture delayed union [Recovering/Resolving]
